FAERS Safety Report 9820711 (Version 1)
Quarter: 2014Q1

REPORT INFORMATION
  Report Type: Spontaneous
  Country: US (occurrence: US)
  Receive Date: 20140116
  Receipt Date: 20140116
  Transmission Date: 20141002
  Serious: Yes (Hospitalization, Other)
  Sender: FDA-Public Use
  Company Number: US-ELI_LILLY_AND_COMPANY-US201401003116

PATIENT
  Age: 38 Year
  Sex: Male

DRUGS (2)
  1. EFFIENT [Suspect]
     Indication: ACUTE CORONARY SYNDROME
     Dosage: 60 MG, SINGLE
     Route: 048
     Dates: start: 20131228, end: 20131228
  2. EFFIENT [Suspect]
     Dosage: 10 MG, QD
     Route: 048

REACTIONS (1)
  - Acute myocardial infarction [Unknown]
